FAERS Safety Report 6444879-0 (Version None)
Quarter: 2009Q4

REPORT INFORMATION
  Report Type: 
  Country: None (occurrence: None)
  Receive Date: 20091118
  Receipt Date: 20091110
  Transmission Date: 20100525
  Serious: Yes (Hospitalization)
  Sender: FDA-Public Use
  Company Number: GXKR2009TR12339

PATIENT
  Age: 28 Year
  Sex: Female

DRUGS (4)
  1. QUETIAPINE (NGX) [Suspect]
     Indication: SCHIZOPHRENIA
     Dosage: 900 MG/DAY
     Route: 065
  2. OLANZAPINE [Suspect]
     Indication: SCHIZOPHRENIA
     Dosage: 20 MG/DAY
     Route: 065
  3. VALPROIC ACID (NGX) [Suspect]
     Dosage: 1000 MG/DAY
     Route: 065
  4. LITHIUM [Suspect]
     Dosage: 1200 MG/DAY
     Route: 065

REACTIONS (5)
  - HYPERCHOLESTEROLAEMIA [None]
  - HYPERTENSION [None]
  - METABOLIC SYNDROME [None]
  - TYPE 2 DIABETES MELLITUS [None]
  - WEIGHT INCREASED [None]
